FAERS Safety Report 6291169-5 (Version None)
Quarter: 2009Q3

REPORT INFORMATION
  Report Type: 
  Country: None (occurrence: None)
  Receive Date: 20090730
  Receipt Date: 20090721
  Transmission Date: 20100115
  Serious: Yes (Hospitalization, Other)
  Sender: FDA-Public Use
  Company Number: B0585644A

PATIENT
  Age: 58 Year
  Sex: Female

DRUGS (6)
  1. PAROXETINE HCL [Suspect]
     Route: 048
  2. THYRADIN S [Suspect]
     Indication: HYPOTHYROIDISM
     Route: 048
  3. AMLODIPINE [Suspect]
     Indication: HYPERTENSION
     Route: 048
  4. HIRNAMIN [Suspect]
  5. ZYPREXA [Suspect]
  6. MEILAX [Suspect]

REACTIONS (4)
  - ALTERED STATE OF CONSCIOUSNESS [None]
  - OVERDOSE [None]
  - SINUS TACHYCARDIA [None]
  - SUICIDE ATTEMPT [None]
